FAERS Safety Report 17330700 (Version 1)
Quarter: 2020Q1

REPORT INFORMATION
  Report Type: Spontaneous
  Country: CN (occurrence: CN)
  Receive Date: 20200127
  Receipt Date: 20200127
  Transmission Date: 20200409
  Serious: Yes (Hospitalization, Other)
  Sender: FDA-Public Use
  Company Number: CN-009507513-2001CHN008196

PATIENT
  Age: 79 Year
  Sex: Male
  Weight: 60 kg

DRUGS (3)
  1. TIENAM [Suspect]
     Active Substance: CILASTATIN SODIUM\IMIPENEM
     Indication: SEPSIS
  2. SODIUM CHLORIDE. [Suspect]
     Active Substance: SODIUM CHLORIDE
     Dosage: 100 ML
  3. TIENAM [Suspect]
     Active Substance: CILASTATIN SODIUM\IMIPENEM
     Indication: PNEUMONIA
     Dosage: 500 MG, IVGTT, Q8H
     Route: 041
     Dates: start: 20191227, end: 20200104

REACTIONS (7)
  - Basal ganglia infarction [Unknown]
  - Productive cough [Unknown]
  - Dyspnoea [Unknown]
  - Seizure [Recovering/Resolving]
  - Sputum retention [Unknown]
  - Pallor [Unknown]
  - Mental fatigue [Unknown]

NARRATIVE: CASE EVENT DATE: 20200104
